FAERS Safety Report 5019895-6 (Version None)
Quarter: 2006Q2

REPORT INFORMATION
  Report Type: 
  Country: None (occurrence: None)
  Receive Date: 20060605
  Receipt Date: 20060605
  Transmission Date: 20061013
  Serious: No
  Sender: FDA-Public Use
  Company Number: None

PATIENT
  Sex: Female
  Weight: 58.9676 kg

DRUGS (2)
  1. PREMARIN [Suspect]
     Indication: HORMONE REPLACEMENT THERAPY
     Dosage: 1 TABLET  DAILY PO
     Route: 048
     Dates: start: 20060301, end: 20060603
  2. PREMARIN [Suspect]
     Indication: MENOPAUSE
     Dosage: 1 TABLET  DAILY PO
     Route: 048
     Dates: start: 20060301, end: 20060603

REACTIONS (5)
  - ORAL PRURITUS [None]
  - PHARMACEUTICAL PRODUCT COUNTERFEIT [None]
  - PRURITUS [None]
  - SWELLING FACE [None]
  - THERAPEUTIC PRODUCT CONTAMINATION [None]
